FAERS Safety Report 6753533-7 (Version None)
Quarter: 2010Q2

REPORT INFORMATION
  Report Type: 
  Country: None (occurrence: None)
  Receive Date: 20100528
  Receipt Date: 20100519
  Transmission Date: 20101027
  Serious: Yes (Disabling)
  Sender: FDA-Public Use
  Company Number: 2009JP003905

PATIENT
  Age: 41 Year
  Sex: Male
  Weight: 50.7 kg

DRUGS (8)
  1. PROGRAF [Suspect]
     Indication: SYSTEMIC LUPUS ERYTHEMATOSUS
     Dosage: 3 MG, UID/QD, ORAL
     Route: 048
     Dates: start: 20090528, end: 20090606
  2. PREDNISOLONE [Concomitant]
  3. OMEPRAZOLE [Concomitant]
  4. MUCOSTA (REBAMIPIDE) [Concomitant]
  5. FLORID (MICONAZOLE) [Concomitant]
  6. ALFAROL (ALFACALCIDOL) [Concomitant]
  7. NEORAL [Concomitant]
  8. COTRIM [Concomitant]

REACTIONS (3)
  - CONDITION AGGRAVATED [None]
  - INAPPROPRIATE ANTIDIURETIC HORMONE SECRETION [None]
  - SYSTEMIC LUPUS ERYTHEMATOSUS [None]
